FAERS Safety Report 18353149 (Version 1)
Quarter: 2020Q4

REPORT INFORMATION
  Report Type: Spontaneous
  Country: JP (occurrence: JP)
  Receive Date: 20201007
  Receipt Date: 20201007
  Transmission Date: 20210114
  Serious: Yes (Life-Threatening, Hospitalization, Other)
  Sender: FDA-Public Use
  Company Number: JP-ACCORD-204461

PATIENT
  Age: 53 Year
  Sex: Male

DRUGS (8)
  1. VALSARTAN. [Concomitant]
     Active Substance: VALSARTAN
  2. AMLODIPINE [Concomitant]
     Active Substance: AMLODIPINE BESYLATE
  3. BLEOMYCIN [Suspect]
     Active Substance: BLEOMYCIN SULFATE
     Indication: EXTRAGONADAL PRIMARY EMBRYONAL CARCINOMA
     Dosage: DAYS 1, 8, AND 15
  4. ALLOPURINOL. [Concomitant]
     Active Substance: ALLOPURINOL
  5. DICLOFENAC [Concomitant]
     Active Substance: DICLOFENAC
  6. CISPLATIN. [Suspect]
     Active Substance: CISPLATIN
     Indication: EXTRAGONADAL PRIMARY EMBRYONAL CARCINOMA
     Dosage: DAYS 1 5
  7. GRANULOCYTE COLONY STIMULATING [Suspect]
     Active Substance: GRANULOCYTE COLONY-STIMULATING FACTOR NOS
     Indication: PRODUCT USED FOR UNKNOWN INDICATION
  8. ETOPOSIDE. [Suspect]
     Active Substance: ETOPOSIDE
     Indication: EXTRAGONADAL PRIMARY EMBRYONAL CARCINOMA
     Dosage: DAYS 1-5

REACTIONS (2)
  - Neutrophil count decreased [Unknown]
  - Pneumonia [Unknown]
